FAERS Safety Report 4667242-1 (Version None)
Quarter: 2005Q2

REPORT INFORMATION
  Report Type: 
  Country: None (occurrence: None)
  Receive Date: 20050520
  Receipt Date: 20050422
  Transmission Date: 20051028
  Serious: Yes (Other)
  Sender: FDA-Public Use
  Company Number: US-BRISTOL-MYERS SQUIBB COMPANY-12942603

PATIENT
  Age: 75 Year
  Sex: Female

DRUGS (1)
  1. SINEMET [Suspect]
     Indication: PARKINSON'S DISEASE
     Dosage: DURATION OF THERAPY:  ^SEVERAL YEARS^

REACTIONS (3)
  - DEMENTIA [None]
  - PARANOIA [None]
  - PSYCHOTIC DISORDER [None]
